FAERS Safety Report 20922518 (Version 2)
Quarter: 2022Q2

REPORT INFORMATION
  Report Type: Spontaneous
  Country: TW (occurrence: TW)
  Receive Date: 20220607
  Receipt Date: 20220611
  Transmission Date: 20220721
  Serious: Yes (Death, Other)
  Sender: FDA-Public Use
  Company Number: TW-drreddys-LIT/TAI/22/0150915

PATIENT
  Age: 58 Year
  Sex: Male

DRUGS (4)
  1. DOXORUBICIN [Suspect]
     Active Substance: DOXORUBICIN
     Indication: Anaplastic thyroid cancer
     Dosage: FOUR CYCLES
     Route: 042
  2. PEMBROLIZUMAB [Suspect]
     Active Substance: PEMBROLIZUMAB
     Indication: Anaplastic thyroid cancer
  3. LENVATINIB [Suspect]
     Active Substance: LENVATINIB
     Indication: Anaplastic thyroid cancer
     Route: 048
  4. LENVATINIB [Suspect]
     Active Substance: LENVATINIB
     Dosage: ON ALTERNATE DAYS
     Route: 048

REACTIONS (4)
  - Pneumonia [Fatal]
  - Tracheal fistula [Unknown]
  - Neutropenia [Unknown]
  - Genital herpes simplex [Unknown]
